FAERS Safety Report 19319229 (Version 1)
Quarter: 2021Q2

REPORT INFORMATION
  Report Type: Spontaneous
  Country: US (occurrence: US)
  Receive Date: 20210527
  Receipt Date: 20210527
  Transmission Date: 20210717
  Serious: Yes (Hospitalization)
  Sender: FDA-Public Use
  Company Number: None

PATIENT
  Sex: Female

DRUGS (14)
  1. ESBRIET [Suspect]
     Active Substance: PIRFENIDONE
     Indication: IDIOPATHIC PULMONARY FIBROSIS
     Route: 048
     Dates: start: 20181227
  2. ASPIRIN. [Concomitant]
     Active Substance: ASPIRIN
  3. BACTRIM DS [Concomitant]
     Active Substance: SULFAMETHOXAZOLE\TRIMETHOPRIM
  4. VITAMIN D [Concomitant]
     Active Substance: VITAMIN D NOS
  5. MAG OXIDE [Concomitant]
     Active Substance: MAGNESIUM OXIDE
  6. PHOSPHA NEUTRAL [Concomitant]
  7. ACYCLOVIR. [Concomitant]
     Active Substance: ACYCLOVIR
  8. LEVOTHYROXIN [Concomitant]
     Active Substance: LEVOTHYROXINE
  9. LIPITOR [Concomitant]
     Active Substance: ATORVASTATIN CALCIUM
  10. OMEPRAZOLE. [Concomitant]
     Active Substance: OMEPRAZOLE
  11. CALCIUM CHW [Concomitant]
  12. PENICILLIN VK [Concomitant]
     Active Substance: PENICILLIN V POTASSIUM
  13. METOPROL SUC ER [Concomitant]
     Active Substance: METOPROLOL SUCCINATE
  14. FOLIC ACID. [Concomitant]
     Active Substance: FOLIC ACID

REACTIONS (2)
  - Pneumonia [None]
  - Intentional dose omission [None]
